FAERS Safety Report 24453278 (Version 2)
Quarter: 2024Q4

REPORT INFORMATION
  Report Type: Report from Study
  Country: US (occurrence: US)
  Receive Date: 20241017
  Receipt Date: 20241018
  Transmission Date: 20250114
  Serious: No
  Sender: ROCHE
  Company Number: US-ROCHE-3064449

PATIENT
  Age: 53 Year
  Sex: Female

DRUGS (13)
  1. RITUXAN [Suspect]
     Active Substance: RITUXIMAB
     Indication: Multiple sclerosis
     Route: 042
  2. ADDERALL [Concomitant]
     Active Substance: AMPHETAMINE ASPARTATE\AMPHETAMINE SULFATE\DEXTROAMPHETAMINE SACCHARATE\DEXTROAMPHETAMINE SULFATE
  3. TOPIRAMATE [Concomitant]
     Active Substance: TOPIRAMATE
  4. BACLOFEN [Concomitant]
     Active Substance: BACLOFEN
  5. NEURONTIN [Concomitant]
     Active Substance: GABAPENTIN
  6. NALTREXONE [Concomitant]
     Active Substance: NALTREXONE
  7. RISPERIDONE [Concomitant]
     Active Substance: RISPERIDONE
  8. OXYBUTYNIN [Concomitant]
     Active Substance: OXYBUTYNIN
  9. IMITREX [Concomitant]
     Active Substance: SUMATRIPTAN SUCCINATE
  10. DIAZEPAM [Concomitant]
     Active Substance: DIAZEPAM
  11. NARCAN [Concomitant]
     Active Substance: NALOXONE HYDROCHLORIDE
  12. HYDROCODONE [Concomitant]
     Active Substance: HYDROCODONE
  13. CLINDAMYCIN [Concomitant]
     Active Substance: CLINDAMYCIN

REACTIONS (2)
  - Off label use [Unknown]
  - No adverse event [Unknown]
